FAERS Safety Report 18594108 (Version 3)
Quarter: 2022Q2

REPORT INFORMATION
  Report Type: Report from Study
  Country: FR (occurrence: FR)
  Receive Date: 20201209
  Receipt Date: 20220418
  Transmission Date: 20220721
  Serious: Yes (Hospitalization, Other)
  Sender: FDA-Public Use
  Company Number: FR-TAKEDA-FR201835679

PATIENT
  Age: 52 Year
  Sex: Male
  Weight: 63 kg

DRUGS (101)
  1. TEDUGLUTIDE [Suspect]
     Active Substance: TEDUGLUTIDE
     Indication: Short-bowel syndrome
     Dosage: 3.4 MILLIGRAM, 1/WEEK
     Route: 042
     Dates: start: 20160511, end: 20160603
  2. TEDUGLUTIDE [Suspect]
     Active Substance: TEDUGLUTIDE
     Indication: Short-bowel syndrome
     Dosage: 3.4 MILLIGRAM, 1/WEEK
     Route: 042
     Dates: start: 20160511, end: 20160603
  3. TEDUGLUTIDE [Suspect]
     Active Substance: TEDUGLUTIDE
     Indication: Short-bowel syndrome
     Dosage: 3.4 MILLIGRAM, 1/WEEK
     Route: 042
     Dates: start: 20160511, end: 20160603
  4. TEDUGLUTIDE [Suspect]
     Active Substance: TEDUGLUTIDE
     Indication: Short-bowel syndrome
     Dosage: 3.4 MILLIGRAM, 1/WEEK
     Route: 042
     Dates: start: 20160511, end: 20160603
  5. TEDUGLUTIDE [Suspect]
     Active Substance: TEDUGLUTIDE
     Dosage: 3.2 MILLIGRAM, QD
     Route: 042
     Dates: start: 20160603, end: 20160704
  6. TEDUGLUTIDE [Suspect]
     Active Substance: TEDUGLUTIDE
     Dosage: 3.2 MILLIGRAM, QD
     Route: 042
     Dates: start: 20160603, end: 20160704
  7. TEDUGLUTIDE [Suspect]
     Active Substance: TEDUGLUTIDE
     Dosage: 3.2 MILLIGRAM, QD
     Route: 042
     Dates: start: 20160603, end: 20160704
  8. TEDUGLUTIDE [Suspect]
     Active Substance: TEDUGLUTIDE
     Dosage: 3.2 MILLIGRAM, QD
     Route: 042
     Dates: start: 20160603, end: 20160704
  9. TEDUGLUTIDE [Suspect]
     Active Substance: TEDUGLUTIDE
     Dosage: 3 MILLIGRAM, QD
     Route: 042
     Dates: start: 20160704, end: 20160824
  10. TEDUGLUTIDE [Suspect]
     Active Substance: TEDUGLUTIDE
     Dosage: 3 MILLIGRAM, QD
     Route: 042
     Dates: start: 20160704, end: 20160824
  11. TEDUGLUTIDE [Suspect]
     Active Substance: TEDUGLUTIDE
     Dosage: 3 MILLIGRAM, QD
     Route: 042
     Dates: start: 20160704, end: 20160824
  12. TEDUGLUTIDE [Suspect]
     Active Substance: TEDUGLUTIDE
     Dosage: 3 MILLIGRAM, QD
     Route: 042
     Dates: start: 20160704, end: 20160824
  13. TEDUGLUTIDE [Suspect]
     Active Substance: TEDUGLUTIDE
     Dosage: 3.1 MILLIGRAM, QD
     Route: 042
     Dates: start: 20160824, end: 20160920
  14. TEDUGLUTIDE [Suspect]
     Active Substance: TEDUGLUTIDE
     Dosage: 3.1 MILLIGRAM, QD
     Route: 042
     Dates: start: 20160824, end: 20160920
  15. TEDUGLUTIDE [Suspect]
     Active Substance: TEDUGLUTIDE
     Dosage: 3.1 MILLIGRAM, QD
     Route: 042
     Dates: start: 20160824, end: 20160920
  16. TEDUGLUTIDE [Suspect]
     Active Substance: TEDUGLUTIDE
     Dosage: 3.1 MILLIGRAM, QD
     Route: 042
     Dates: start: 20160824, end: 20160920
  17. TEDUGLUTIDE [Suspect]
     Active Substance: TEDUGLUTIDE
     Dosage: 3 MILLIGRAM, QD
     Route: 042
     Dates: start: 20160920, end: 20170328
  18. TEDUGLUTIDE [Suspect]
     Active Substance: TEDUGLUTIDE
     Dosage: 3 MILLIGRAM, QD
     Route: 042
     Dates: start: 20160920, end: 20170328
  19. TEDUGLUTIDE [Suspect]
     Active Substance: TEDUGLUTIDE
     Dosage: 3 MILLIGRAM, QD
     Route: 042
     Dates: start: 20160920, end: 20170328
  20. TEDUGLUTIDE [Suspect]
     Active Substance: TEDUGLUTIDE
     Dosage: 3 MILLIGRAM, QD
     Route: 042
     Dates: start: 20160920, end: 20170328
  21. TEDUGLUTIDE [Suspect]
     Active Substance: TEDUGLUTIDE
     Dosage: 2.8 MILLIGRAM, QD
     Route: 042
     Dates: start: 20170329, end: 20170526
  22. TEDUGLUTIDE [Suspect]
     Active Substance: TEDUGLUTIDE
     Dosage: 2.8 MILLIGRAM, QD
     Route: 042
     Dates: start: 20170329, end: 20170526
  23. TEDUGLUTIDE [Suspect]
     Active Substance: TEDUGLUTIDE
     Dosage: 2.8 MILLIGRAM, QD
     Route: 042
     Dates: start: 20170329, end: 20170526
  24. TEDUGLUTIDE [Suspect]
     Active Substance: TEDUGLUTIDE
     Dosage: 2.8 MILLIGRAM, QD
     Route: 042
     Dates: start: 20170329, end: 20170526
  25. LOVENOX [Concomitant]
     Active Substance: ENOXAPARIN SODIUM
     Indication: Thrombosis prophylaxis
     Dosage: 4000 INTERNATIONAL UNIT
     Route: 058
     Dates: start: 201706
  26. LOVENOX [Concomitant]
     Active Substance: ENOXAPARIN SODIUM
     Dosage: 6000 INTERNATIONAL UNIT, QD
     Route: 058
     Dates: start: 20180218, end: 2018
  27. PYRIDOXINE HYDROCHLORIDE\THIAMINE HYDROCHLORIDE [Concomitant]
     Active Substance: PYRIDOXINE HYDROCHLORIDE\THIAMINE HYDROCHLORIDE
     Indication: Supplementation therapy
     Dosage: 2 DOSAGE FORM, TID
     Route: 048
     Dates: start: 2017, end: 2017
  28. PYRIDOXINE HYDROCHLORIDE\THIAMINE HYDROCHLORIDE [Concomitant]
     Active Substance: PYRIDOXINE HYDROCHLORIDE\THIAMINE HYDROCHLORIDE
     Dosage: 260 MILLIGRAM, QD
     Route: 048
     Dates: start: 20180218, end: 2018
  29. KAYEXALATE [Concomitant]
     Active Substance: SODIUM POLYSTYRENE SULFONATE
     Indication: Supplementation therapy
     Dosage: 18 GRAM, QD
     Route: 048
     Dates: start: 20180218
  30. PAROXETINE HYDROCHLORIDE [Concomitant]
     Active Substance: PAROXETINE HYDROCHLORIDE
     Indication: Depression
     Dosage: 20 MILLIGRAM, QD
     Route: 048
     Dates: start: 20180218, end: 2018
  31. VEDOLIZUMAB [Concomitant]
     Active Substance: VEDOLIZUMAB
     Indication: Crohn^s disease
     Dosage: 300 MILLIGRAM
     Route: 042
     Dates: start: 20190302, end: 20190502
  32. VEDOLIZUMAB [Concomitant]
     Active Substance: VEDOLIZUMAB
     Dosage: 300 MILLIGRAM
     Route: 042
     Dates: start: 20190626
  33. VEDOLIZUMAB [Concomitant]
     Active Substance: VEDOLIZUMAB
     Dosage: 300 MILLIGRAM
     Route: 042
     Dates: start: 20190821, end: 20190821
  34. BISOPROLOL [Concomitant]
     Active Substance: BISOPROLOL
     Indication: Hypertension
     Dosage: 1.25 MILLIGRAM, QD
     Route: 048
     Dates: start: 20190201
  35. BISOPROLOL [Concomitant]
     Active Substance: BISOPROLOL
     Indication: Hypertension
  36. HYDROCORTISONE [Concomitant]
     Active Substance: HYDROCORTISONE
     Indication: Adrenocorticotropic hormone deficiency
     Dosage: 6 MILLIGRAM, QD
     Route: 048
     Dates: start: 201304, end: 201307
  37. PLAVIX [Concomitant]
     Active Substance: CLOPIDOGREL BISULFATE
     Indication: Arterial disorder
     Dosage: 7600 MILLIGRAM
     Route: 048
     Dates: start: 201304
  38. BISOPROLOL FUMARATE [Concomitant]
     Active Substance: BISOPROLOL FUMARATE
     Indication: Blood pressure increased
     Dosage: 1.26 MILLIGRAM, QD
     Route: 048
     Dates: end: 201403
  39. BISOPROLOL FUMARATE [Concomitant]
     Active Substance: BISOPROLOL FUMARATE
     Indication: Myocardial ischaemia
     Dosage: 2.6 MILLIGRAM, QD
     Route: 048
     Dates: start: 20140624, end: 20171206
  40. BISOPROLOL FUMARATE [Concomitant]
     Active Substance: BISOPROLOL FUMARATE
     Dosage: 1.26 MILLIGRAM, QD
     Route: 048
     Dates: start: 20171206, end: 20171206
  41. TAHOR [Concomitant]
     Active Substance: ATORVASTATIN CALCIUM
     Indication: Dyslipidaemia
     Dosage: 20 MILLIGRAM, QD
     Route: 048
  42. TAHOR [Concomitant]
     Active Substance: ATORVASTATIN CALCIUM
     Indication: Hypertension
     Dosage: 40 UNK
     Route: 048
     Dates: end: 20170213
  43. TAHOR [Concomitant]
     Active Substance: ATORVASTATIN CALCIUM
     Dosage: 40 UNK
     Route: 048
     Dates: start: 20180218
  44. PANTOPRAZOLE [Concomitant]
     Active Substance: PANTOPRAZOLE
     Indication: Nausea
     Dosage: 20 MILLIGRAM, QD
     Route: 048
     Dates: start: 201307, end: 2013
  45. VITAMIN B12 [Concomitant]
     Active Substance: CYANOCOBALAMIN
     Indication: Supplementation therapy
     Dosage: 1000 MICROGRAM, 1/WEEK
     Route: 048
     Dates: start: 201412, end: 2018
  46. VITAMIN B12 [Concomitant]
     Active Substance: CYANOCOBALAMIN
     Dosage: 1 DOSAGE FORM
     Route: 048
     Dates: start: 20190201
  47. SODIUM BICARBONATE [Concomitant]
     Active Substance: SODIUM BICARBONATE
     Indication: Supplementation therapy
     Dosage: 600 MILLIGRAM, TID
     Route: 048
     Dates: end: 201603
  48. SODIUM BICARBONATE [Concomitant]
     Active Substance: SODIUM BICARBONATE
     Dosage: 1 GRAM, TID
     Route: 048
     Dates: start: 2016, end: 2017
  49. FEBUXOSTAT [Concomitant]
     Active Substance: FEBUXOSTAT
     Indication: Hyperuricaemia
     Dosage: 80 MILLIGRAM, QD
     Route: 048
     Dates: start: 20160909
  50. PAROXETINE [Concomitant]
     Active Substance: PAROXETINE
     Indication: Depression
     Dosage: 20 MILLIGRAM, QD
     Route: 048
     Dates: start: 201412
  51. CLOBAZAM [Concomitant]
     Active Substance: CLOBAZAM
     Indication: Depression
     Dosage: 10 MILLIGRAM, QD
     Route: 048
     Dates: start: 20160427
  52. RAMIPRIL [Concomitant]
     Active Substance: RAMIPRIL
     Indication: Hypertension
     Dosage: 1.26 MILLIGRAM, QD
     Route: 048
     Dates: start: 20140204
  53. RAMIPRIL [Concomitant]
     Active Substance: RAMIPRIL
     Dosage: 1.26 MILLIGRAM, QD
     Route: 048
     Dates: start: 20140624
  54. KARDEGIC [Concomitant]
     Active Substance: ASPIRIN DL-LYSINE
     Indication: Arterial disorder
     Dosage: 1.26 MILLIGRAM, QD
     Route: 048
     Dates: start: 201304, end: 20131104
  55. KARDEGIC [Concomitant]
     Active Substance: ASPIRIN DL-LYSINE
     Dosage: 160 MILLIGRAM, QD
     Route: 048
     Dates: start: 20131104, end: 201402
  56. KARDEGIC [Concomitant]
     Active Substance: ASPIRIN DL-LYSINE
     Dosage: 160 MILLIGRAM, QD
     Route: 048
     Dates: start: 201402, end: 20160427
  57. KARDEGIC [Concomitant]
     Active Substance: ASPIRIN DL-LYSINE
     Dosage: 76 MILLIGRAM, QD
     Route: 048
     Dates: start: 20160427
  58. KARDEGIC [Concomitant]
     Active Substance: ASPIRIN DL-LYSINE
     Dosage: 76 MILLIGRAM, QD
     Route: 048
     Dates: start: 201706, end: 2017
  59. MAGNESIUM [Concomitant]
     Active Substance: MAGNESIUM
     Indication: Supplementation therapy
     Dosage: 8 DOSAGE FORM, TID
     Route: 048
  60. MAGNESIUM [Concomitant]
     Active Substance: MAGNESIUM
     Dosage: 2 DOSAGE FORM, TID
     Route: 048
     Dates: start: 201706, end: 2017
  61. CALCIUM PHOSPHATE, DIBASIC, ANHYDROUS\MAGNESIUM GLYCEROPHOSPHATE\PHOSP [Concomitant]
     Active Substance: CALCIUM PHOSPHATE, DIBASIC, ANHYDROUS\MAGNESIUM GLYCEROPHOSPHATE\PHOSPHORIC ACID\SODIUM PHOSPHATE, D
     Indication: Supplementation therapy
     Dosage: 26 GTT DROPS, TID
     Route: 048
     Dates: start: 201706, end: 2017
  62. POTASSIUM CHLORIDE [Concomitant]
     Active Substance: POTASSIUM CHLORIDE
     Indication: Supplementation therapy
     Dosage: 600 MILLIGRAM, QID
     Route: 048
  63. IMOVANE [Concomitant]
     Active Substance: ZOPICLONE
     Indication: Insomnia
     Dosage: 7.6 MILLIGRAM, QD
     Route: 048
  64. LEUCOVORIN CALCIUM [Concomitant]
     Active Substance: LEUCOVORIN CALCIUM
     Indication: Prophylaxis
     Dosage: 6 MILLIGRAM, QD
     Route: 048
     Dates: start: 201307, end: 201307
  65. FERROUS SULFATE [Concomitant]
     Active Substance: FERROUS SULFATE
     Indication: Anaemia
     Dosage: 80 MILLIGRAM, QD
     Route: 048
     Dates: start: 201307
  66. PRISTINAMYCIN [Concomitant]
     Active Substance: PRISTINAMYCIN
     Indication: Subcutaneous abscess
     Dosage: 1 GRAM, TID
     Route: 048
     Dates: start: 201307, end: 201307
  67. ESOMEPRAZOLE [Concomitant]
     Active Substance: ESOMEPRAZOLE
     Indication: Short-bowel syndrome
     Dosage: 40 MILLIGRAM, QD
     Route: 048
     Dates: start: 20131104, end: 2014
  68. ESOMEPRAZOLE [Concomitant]
     Active Substance: ESOMEPRAZOLE
     Dosage: 20 MILLIGRAM, QD
     Route: 048
     Dates: start: 2014
  69. VITAMIN K [Concomitant]
     Active Substance: PHYTONADIONE
     Indication: Supplementation therapy
     Dosage: 10 MILLIGRAM, 1/WEEK
     Route: 042
     Dates: start: 20131104
  70. OFLOXACIN [Concomitant]
     Active Substance: OFLOXACIN
     Indication: Device related infection
     Dosage: 200 MILLIGRAM, BID
     Route: 048
     Dates: start: 20140120, end: 202101
  71. CEFTAZIDIME [Concomitant]
     Active Substance: CEFTAZIDIME
     Indication: Device related infection
     Dosage: 8 GRAM, QD
     Route: 048
     Dates: start: 20140120, end: 201401
  72. CEFTAZIDIME [Concomitant]
     Active Substance: CEFTAZIDIME
     Dosage: 2 GRAM, TID
     Route: 042
     Dates: start: 20170518, end: 20170519
  73. KAYEXALATE [Concomitant]
     Active Substance: SODIUM POLYSTYRENE SULFONATE
     Indication: Hyperkalaemia
     Dosage: 30 GRAM, TID
     Route: 048
     Dates: start: 201402, end: 20170330
  74. GENTAMICIN [Concomitant]
     Active Substance: GENTAMICIN
     Indication: Sepsis
     Dosage: 80 MILLIGRAM, QD
     Route: 042
     Dates: start: 201402, end: 201402
  75. GENTAMICIN [Concomitant]
     Active Substance: GENTAMICIN
     Dosage: 80 MILLIGRAM, QD
     Route: 042
     Dates: start: 20160416, end: 20160420
  76. ROCEPHIN [Concomitant]
     Active Substance: CEFTRIAXONE SODIUM
     Indication: Sepsis
     Dosage: 2 GRAM, QD
     Route: 042
     Dates: start: 201402, end: 201402
  77. VANCOMYCIN [Concomitant]
     Active Substance: VANCOMYCIN
     Indication: Sepsis
     Dosage: 1 GRAM, QD
     Route: 042
     Dates: start: 201402, end: 201402
  78. VANCOMYCIN [Concomitant]
     Active Substance: VANCOMYCIN
     Dosage: 1 GRAM, BID
     Route: 042
     Dates: start: 20160418, end: 20160502
  79. VANCOMYCIN [Concomitant]
     Active Substance: VANCOMYCIN
     Dosage: 2 GRAM, BID
     Route: 042
     Dates: start: 201703, end: 201703
  80. VANCOMYCIN [Concomitant]
     Active Substance: VANCOMYCIN
     Dosage: 2 GRAM, BID
     Route: 042
     Dates: start: 201703, end: 201703
  81. VANCOMYCIN [Concomitant]
     Active Substance: VANCOMYCIN
     Dosage: 2 GRAM, BID
     Route: 042
     Dates: start: 20170517, end: 20170519
  82. CHOLECALCIFEROL [Concomitant]
     Active Substance: CHOLECALCIFEROL
     Indication: Supplementation therapy
     Dosage: 4000 INTERNATIONAL UNIT
     Route: 048
     Dates: start: 201402, end: 201405
  83. CHOLECALCIFEROL [Concomitant]
     Active Substance: CHOLECALCIFEROL
     Dosage: 80000 INTERNATIONAL UNIT
     Route: 048
     Dates: start: 20180218
  84. ALBUTEROL [Concomitant]
     Active Substance: ALBUTEROL
     Dosage: 1.26 MILLIGRAM, TID
     Route: 048
     Dates: start: 201405
  85. CALCIUM\CHOLECALCIFEROL [Concomitant]
     Active Substance: CALCIUM\CHOLECALCIFEROL
     Indication: Supplementation therapy
     Dosage: 600 MILLIGRAM, BID
     Route: 048
     Dates: start: 201412
  86. RIFAMPIN [Concomitant]
     Active Substance: RIFAMPIN
     Indication: Infection
     Dosage: 600 MILLIGRAM, BID
     Route: 042
     Dates: start: 20160418, end: 20160502
  87. POTASSIUM [Concomitant]
     Active Substance: POTASSIUM
     Indication: Hypokalaemia
     Dosage: 2 GRAM, QD
     Route: 042
     Dates: start: 20210331
  88. DAPTOMYCIN [Concomitant]
     Active Substance: DAPTOMYCIN
     Indication: Infection
     Dosage: 600 MILLIGRAM, QD
     Route: 042
     Dates: start: 20170519, end: 20170527
  89. PIPERACILLIN [Concomitant]
     Active Substance: PIPERACILLIN
     Indication: Infection
     Dosage: 4 GRAM, TID
     Route: 042
     Dates: start: 20170519, end: 20170531
  90. PYRIDOXINE [Concomitant]
     Active Substance: PYRIDOXINE
     Indication: Supplementation therapy
     Dosage: 260 MILLIGRAM, BID
     Route: 048
     Dates: start: 201706, end: 2017
  91. THIAMINE [Concomitant]
     Active Substance: THIAMINE
     Indication: Supplementation therapy
     Dosage: 260 MILLIGRAM, BID
     Route: 048
     Dates: start: 201706, end: 2017
  92. FERINJECT [Concomitant]
     Active Substance: FERRIC CARBOXYMALTOSE
     Indication: Anaemia
     Dosage: 1 GRAM
     Route: 042
     Dates: start: 20171114, end: 20171114
  93. Calcidose [Concomitant]
     Indication: Vitamin D deficiency
     Dosage: 2 UNK, TID
     Route: 048
     Dates: start: 20171206
  94. FOLIC ACID [Concomitant]
     Active Substance: FOLIC ACID
     Indication: Supplementation therapy
     Dosage: 6 MILLIGRAM, QD
     Route: 048
     Dates: start: 20180218
  95. COUMADIN [Concomitant]
     Active Substance: WARFARIN SODIUM
     Indication: Thrombosis
     Dosage: 2 MILLIGRAM, QD
     Route: 048
     Dates: start: 20180218
  96. CEFAZOLIN [Concomitant]
     Active Substance: CEFAZOLIN
     Indication: Sepsis
     Dosage: 1.60 MILLIGRAM, QD
     Route: 048
     Dates: start: 20180212, end: 20180311
  97. CEFAZOLIN [Concomitant]
     Active Substance: CEFAZOLIN
     Indication: Hyperthermia
  98. CEFAZOLIN [Concomitant]
     Active Substance: CEFAZOLIN
     Indication: Infection
  99. ALBUMIN HUMAN [Concomitant]
     Active Substance: ALBUMIN HUMAN
     Indication: Hypoalbuminaemia
     Dosage: 20 GRAM, QD
     Route: 050
     Dates: start: 20180112, end: 20180114
  100. ALBUMIN HUMAN [Concomitant]
     Active Substance: ALBUMIN HUMAN
     Indication: Hypoalbuminaemia
  101. ALBUMIN HUMAN [Concomitant]
     Active Substance: ALBUMIN HUMAN
     Indication: Oedema

REACTIONS (2)
  - Device related infection [Recovered/Resolved]
  - Device breakage [Recovered/Resolved]

NARRATIVE: CASE EVENT DATE: 20180111
